FAERS Safety Report 24825798 (Version 1)
Quarter: 2025Q1

REPORT INFORMATION
  Report Type: Spontaneous
  Country: TR (occurrence: TR)
  Receive Date: 20250109
  Receipt Date: 20250109
  Transmission Date: 20250409
  Serious: Yes (Other)
  Sender: PFIZER
  Company Number: TR-PFIZER INC-PV202500000043

PATIENT
  Age: 17 Year
  Sex: Male

DRUGS (3)
  1. SOMATROPIN [Suspect]
     Active Substance: SOMATROPIN
     Indication: Blood growth hormone abnormal
     Dosage: DAILY (0.21 MG/KG/WEEK)
     Route: 058
  2. SOMATROPIN [Suspect]
     Active Substance: SOMATROPIN
     Dosage: DAILY (0.30 MG/KG/WEEK)
     Route: 058
  3. TESTOSTERONE [Concomitant]
     Active Substance: TESTOSTERONE
     Indication: Delayed puberty
     Dosage: 50 MG, MONTHLY ((PROPIONATE 30 MG, PHENYLPROPIONATE 60 MG, ISOCAPROAT 60 MG, DECANOATE 100 MG)
     Route: 030

REACTIONS (1)
  - Central hypothyroidism [Not Recovered/Not Resolved]
